FAERS Safety Report 5574702-8 (Version None)
Quarter: 2007Q4

REPORT INFORMATION
  Report Type: 
  Country: None (occurrence: None)
  Receive Date: 20071221
  Receipt Date: 20071221
  Transmission Date: 20080405
  Serious: No
  Sender: FDA-Public Use
  Company Number: None

PATIENT
  Sex: Male
  Weight: 65.7716 kg

DRUGS (1)
  1. VALTREX [Suspect]
     Indication: HERPES ZOSTER
     Dosage: ONE GRAM THREE TIMES A DAY PO
     Route: 048
     Dates: start: 20071205, end: 20071211

REACTIONS (6)
  - NAUSEA [None]
  - RENAL DISORDER [None]
  - RENAL PAIN [None]
  - RENAL TUBULAR NECROSIS [None]
  - URINE OUTPUT DECREASED [None]
  - VOMITING [None]
